FAERS Safety Report 10479609 (Version 2)
Quarter: 2014Q3

REPORT INFORMATION
  Report Type: Report from Study
  Country: US (occurrence: US)
  Receive Date: 20140927
  Receipt Date: 20140927
  Transmission Date: 20150326
  Serious: Yes (Hospitalization)
  Sender: FDA-Public Use
  Company Number: US-ALEXION PHARMACEUTICALS INC.-A200700315

PATIENT
  Sex: Male

DRUGS (3)
  1. COUMADIN [Concomitant]
     Active Substance: WARFARIN SODIUM
     Indication: PRODUCT USED FOR UNKNOWN INDICATION
     Dosage: UNK
  2. SOLIRIS [Suspect]
     Active Substance: ECULIZUMAB
     Indication: PAROXYSMAL NOCTURNAL HAEMOGLOBINURIA
     Dosage: UNK, SINGLE
     Route: 042
     Dates: start: 20080102, end: 20080102
  3. PROCRIT [Suspect]
     Active Substance: ERYTHROPOIETIN
     Indication: HAEMOGLOBIN DECREASED
     Dosage: UNK
     Dates: start: 200805

REACTIONS (9)
  - Headache [Recovering/Resolving]
  - Haemoglobin decreased [Unknown]
  - Pneumonia [Recovered/Resolved]
  - Quality of life decreased [Unknown]
  - Transfusion [Unknown]
  - Fatigue [Unknown]
  - Asthenia [Recovering/Resolving]
  - Medial tibial stress syndrome [Not Recovered/Not Resolved]
  - Haemoglobinuria [Unknown]
